FAERS Safety Report 25303917 (Version 1)
Quarter: 2025Q2

REPORT INFORMATION
  Report Type: Spontaneous
  Country: FR (occurrence: FR)
  Receive Date: 20250513
  Receipt Date: 20250513
  Transmission Date: 20250717
  Serious: Yes (Hospitalization, Other)
  Sender: UNICHEM
  Company Number: FR-UNICHEM LABORATORIES LIMITED-UNI-2025-FR-002178

PATIENT

DRUGS (2)
  1. HYDROCHLOROTHIAZIDE [Suspect]
     Active Substance: HYDROCHLOROTHIAZIDE
     Indication: Product used for unknown indication
     Route: 065
  2. FUROSEMIDE [Suspect]
     Active Substance: FUROSEMIDE
     Indication: Product used for unknown indication
     Route: 065

REACTIONS (4)
  - Toxicity to various agents [Unknown]
  - Ventricular extrasystoles [Unknown]
  - Electrocardiogram QT prolonged [Unknown]
  - Hypokalaemia [Unknown]
